FAERS Safety Report 6934062-4 (Version None)
Quarter: 2010Q3

REPORT INFORMATION
  Report Type: 
  Country: None (occurrence: None)
  Receive Date: 20100820
  Receipt Date: 20100812
  Transmission Date: 20110219
  Serious: Yes (Hospitalization, Other)
  Sender: FDA-Public Use
  Company Number: US-MPIJNJ-2010-01999

PATIENT
  Age: 12 Year
  Sex: Male
  Weight: 46.4 kg

DRUGS (4)
  1. VELCADE [Suspect]
     Indication: ACUTE LYMPHOCYTIC LEUKAEMIA
     Dosage: 1.3 MG/M2, CYCLIC
     Route: 042
     Dates: start: 20100109, end: 20100301
  2. METHOTREXATE [Suspect]
     Indication: ACUTE LYMPHOCYTIC LEUKAEMIA
     Dosage: UNK MG/M2, CYCLIC
     Dates: start: 20100109, end: 20100216
  3. ETOPOSIDE [Suspect]
     Indication: ACUTE LYMPHOCYTIC LEUKAEMIA
     Dosage: 100 MG/M2, CYCLIC
     Route: 042
     Dates: start: 20100109, end: 20100226
  4. CYCLOPHOSPHAMIDE [Suspect]
     Indication: ACUTE LYMPHOCYTIC LEUKAEMIA
     Dosage: 440 MG/M2, CYCLIC
     Route: 042
     Dates: start: 20100109, end: 20100226

REACTIONS (3)
  - ALANINE AMINOTRANSFERASE [None]
  - CAECITIS [None]
  - VIRAL INFECTION [None]
